FAERS Safety Report 8186282-1 (Version None)
Quarter: 2012Q1

REPORT INFORMATION
  Report Type: 
  Country: None (occurrence: None)
  Receive Date: 20120306
  Receipt Date: 20120227
  Transmission Date: 20120608
  Serious: Yes (Other)
  Sender: FDA-Public Use
  Company Number: US-BAYER-201039845NA

PATIENT
  Age: 24 Year
  Sex: Female
  Weight: 74.83 kg

DRUGS (5)
  1. DROSPIRENONE AND ETHINYL ESTRADIOL [Suspect]
     Indication: PREMENSTRUAL SYNDROME
  2. YASMIN [Suspect]
     Indication: PREMENSTRUAL SYNDROME
     Dosage: UNK UNK, UNK
     Route: 048
     Dates: start: 20010101, end: 20091201
  3. YAZ [Suspect]
     Indication: PREMENSTRUAL SYNDROME
     Route: 048
     Dates: start: 20010101, end: 20091215
  4. EXCEDRIN [CAFFEINE,PARACETAMOL] [Concomitant]
     Indication: HEADACHE
     Dosage: UNK UNK, PRN
     Route: 048
     Dates: start: 20000101, end: 20110101
  5. ACETAMINOPHEN [Concomitant]
     Indication: HEADACHE
     Dosage: UNK UNK, PRN
     Route: 048
     Dates: start: 20000101, end: 20110101

REACTIONS (6)
  - DYSPEPSIA [None]
  - NAUSEA [None]
  - GALLBLADDER DISORDER [None]
  - ABDOMINAL DISCOMFORT [None]
  - DISCOMFORT [None]
  - CHOLECYSTITIS CHRONIC [None]
